FAERS Safety Report 9564060 (Version 1)
Quarter: 2013Q3

REPORT INFORMATION
  Report Type: Spontaneous
  Country: US (occurrence: US)
  Receive Date: 20130928
  Receipt Date: 20130928
  Transmission Date: 20140515
  Serious: No
  Sender: FDA-Public Use
  Company Number: US-009507513-1309USA013202

PATIENT
  Sex: 0

DRUGS (2)
  1. CLARITIN [Suspect]
  2. ZYRTEC [Suspect]

REACTIONS (1)
  - Drug ineffective [Unknown]
